FAERS Safety Report 4380681-1 (Version None)
Quarter: 2004Q2

REPORT INFORMATION
  Report Type: 
  Country: None (occurrence: None)
  Receive Date: 20040618
  Receipt Date: 20040614
  Transmission Date: 20050107
  Serious: Yes (Hospitalization)
  Sender: FDA-Public Use
  Company Number: FR-BRISTOL-MYERS SQUIBB COMPANY-12616512

PATIENT
  Age: 63 Year
  Sex: Female

DRUGS (3)
  1. TAXOL [Suspect]
     Dosage: FIRST CYCLE GIVEN ON 19-JAN-2004
     Route: 042
     Dates: start: 20040301, end: 20040301
  2. CARBOPLATINE [Suspect]
     Dosage: FIRST CYCLE ON 19-JAN-2004
     Route: 042
     Dates: start: 20040301, end: 20040301
  3. HERCEPTIN [Suspect]
     Dosage: FIRST CYCLE ON 19-JAN-2004.
     Route: 042
     Dates: start: 20040301, end: 20040301

REACTIONS (5)
  - ANOREXIA [None]
  - DIARRHOEA [None]
  - HYPOKALAEMIA [None]
  - INFLAMMATION [None]
  - VOMITING [None]
